FAERS Safety Report 16143029 (Version 1)
Quarter: 2019Q2

REPORT INFORMATION
  Report Type: Spontaneous
  Country: CH (occurrence: CH)
  Receive Date: 20190401
  Receipt Date: 20190401
  Transmission Date: 20190711
  Serious: Yes (Other)
  Sender: FDA-Public Use
  Company Number: PHHY2019CH061066

PATIENT
  Age: 71 Year
  Sex: Male
  Weight: 83.3 kg

DRUGS (15)
  1. TOREM [Concomitant]
     Active Substance: TORSEMIDE
     Indication: PRODUCT USED FOR UNKNOWN INDICATION
     Dosage: 1 DF, UNK (10 MG, 0.5-0-0-0 )
     Route: 048
     Dates: start: 20190221
  2. TAMSULOSIN [Concomitant]
     Active Substance: TAMSULOSIN
     Indication: PRODUCT USED FOR UNKNOWN INDICATION
     Dosage: 0.4 MG, UNK (1-0-0-0 )
     Route: 048
     Dates: start: 20190221
  3. PENICILLIN GRUNENTHAL [Suspect]
     Active Substance: PENICILLIN G POTASSIUM\PENICILLIN G SODIUM
     Indication: STAPHYLOCOCCAL BACTERAEMIA
     Dosage: VARIABLE DOSAGE, MAX 14 MILLION UNITS/DAY
     Route: 042
     Dates: start: 20190221, end: 20190223
  4. FLATULEX [Concomitant]
     Active Substance: ACTIVATED CHARCOAL\DIMETHICONE
     Indication: PRODUCT USED FOR UNKNOWN INDICATION
     Dosage: 84 MG, UNK (2-2-2-0 )
     Route: 048
     Dates: start: 20190221
  5. LANTUS [Concomitant]
     Active Substance: INSULIN GLARGINE
     Indication: PRODUCT USED FOR UNKNOWN INDICATION
     Dosage: 8 IU, UNK (100 U/ML, 0-0-8-0)
     Route: 058
     Dates: start: 20190221
  6. ATROVENT [Concomitant]
     Active Substance: IPRATROPIUM BROMIDE
     Indication: PRODUCT USED FOR UNKNOWN INDICATION
     Dosage: 1 DF, UNK (0.02MG/DOSE, 1-1-1-1 )
     Route: 055
     Dates: start: 20190221
  7. QUETIAPINE. [Concomitant]
     Active Substance: QUETIAPINE
     Indication: PRODUCT USED FOR UNKNOWN INDICATION
     Dosage: 25 MG, PRN
     Route: 048
     Dates: start: 20190306
  8. PENICILLIN GRUNENTHAL [Suspect]
     Active Substance: PENICILLIN G POTASSIUM\PENICILLIN G SODIUM
     Dosage: 16 MILLION UNITS/DAY
     Route: 042
     Dates: start: 20190305, end: 20190308
  9. ACIDUM FOLICUM STREULI [Concomitant]
     Active Substance: FOLIC ACID
     Indication: PRODUCT USED FOR UNKNOWN INDICATION
     Dosage: 5 MG, UNK (1-0-0-0)
     Route: 048
     Dates: start: 20190221
  10. DAFALGAN [Concomitant]
     Active Substance: ACETAMINOPHEN
     Indication: PRODUCT USED FOR UNKNOWN INDICATION
     Dosage: 500 MG, UNK (1-1-1-1 )
     Route: 048
     Dates: start: 20190221
  11. CALCIPARINE [Concomitant]
     Active Substance: HEPARIN CALCIUM
     Indication: PRODUCT USED FOR UNKNOWN INDICATION
     Dosage: 5000 IU, UNK (5000-0-5000-0 )
     Route: 058
     Dates: start: 20190221
  12. PANTOPRAZOLE SODIUM. [Suspect]
     Active Substance: PANTOPRAZOLE SODIUM
     Indication: HAEMORRHAGE PROPHYLAXIS
     Dosage: 20 MG, UNK (1-0-1)
     Route: 048
  13. PENICILLIN GRUNENTHAL [Suspect]
     Active Substance: PENICILLIN G POTASSIUM\PENICILLIN G SODIUM
     Dosage: 8 MILLION UNITS/DAY
     Route: 042
     Dates: start: 20190224, end: 20190304
  14. NOVORAPID [Concomitant]
     Active Substance: INSULIN ASPART
     Indication: PRODUCT USED FOR UNKNOWN INDICATION
     Dosage: 1 DF, PRN (100 U/ML)
     Route: 058
     Dates: start: 20190221
  15. VENTOLIN [Concomitant]
     Active Substance: ALBUTEROL SULFATE
     Indication: PRODUCT USED FOR UNKNOWN INDICATION
     Dosage: 1 DF, UNK (1.25 MG/2.5 ML, 1-1-1-1)
     Route: 055
     Dates: start: 20190221

REACTIONS (4)
  - Acute psychosis [Not Recovered/Not Resolved]
  - Blood creatinine increased [None]
  - Hallucination, visual [Not Recovered/Not Resolved]
  - Glomerular filtration rate decreased [None]

NARRATIVE: CASE EVENT DATE: 20190305
